FAERS Safety Report 4677800-6 (Version None)
Quarter: 2005Q2

REPORT INFORMATION
  Report Type: 
  Country: None (occurrence: None)
  Receive Date: 20050531
  Receipt Date: 20050519
  Transmission Date: 20051028
  Serious: Yes (Death)
  Sender: FDA-Public Use
  Company Number: JP-JNJFOC-20050504694

PATIENT
  Sex: Female

DRUGS (1)
  1. TARIVID [Suspect]
     Indication: URINARY TRACT INFECTION
     Route: 042
     Dates: start: 20040101, end: 20040101

REACTIONS (2)
  - DEATH [None]
  - HALLUCINATION [None]
